FAERS Safety Report 5386841-5 (Version None)
Quarter: 2007Q3

REPORT INFORMATION
  Report Type: 
  Country: None (occurrence: None)
  Receive Date: 20070713
  Receipt Date: 20070709
  Transmission Date: 20080115
  Serious: Yes (Disabling)
  Sender: FDA-Public Use
  Company Number: US-BOEHRINGER INGELHEIM PHARMACEUTICALS, INC.-2007-BP-17091BP

PATIENT
  Age: 80 Year
  Sex: Male

DRUGS (7)
  1. FLOMAX [Suspect]
     Indication: BENIGN PROSTATIC HYPERPLASIA
     Route: 048
     Dates: start: 20000101
  2. GAVATRIN [Concomitant]
  3. CADUET [Concomitant]
  4. ASPIRIN [Concomitant]
  5. PRILOSEC [Concomitant]
  6. LASIX [Concomitant]
  7. POTASSIUM CHLORIDE [Concomitant]

REACTIONS (4)
  - BLINDNESS TRANSIENT [None]
  - CATARACT [None]
  - IRIS DISORDER [None]
  - PHOTOPHOBIA [None]
